FAERS Safety Report 11552233 (Version 3)
Quarter: 2015Q4

REPORT INFORMATION
  Report Type: Spontaneous
  Country: None (occurrence: None)
  Receive Date: 20150923
  Receipt Date: 20151016
  Transmission Date: 20160304
  Serious: Yes (Death)
  Sender: FDA-Public Use
  Company Number: 1713747-2015-999325

PATIENT
  Age: 84 Year
  Sex: Female

DRUGS (13)
  1. AMLODIPINE [Concomitant]
     Active Substance: AMLODIPINE BESYLATE
  2. ESCIALOPRAM [Concomitant]
  3. METOPROLOL [Concomitant]
     Active Substance: METOPROLOL
  4. LEVOTHYROXINE. [Concomitant]
     Active Substance: LEVOTHYROXINE
  5. ALBUTEROL. [Concomitant]
     Active Substance: ALBUTEROL
  6. ALPRAZOLAM. [Concomitant]
     Active Substance: ALPRAZOLAM
  7. HYDRALAZINE [Concomitant]
     Active Substance: HYDRALAZINE HYDROCHLORIDE
  8. POTASSIUM CHLORIDE. [Concomitant]
     Active Substance: POTASSIUM CHLORIDE
  9. DELFLEX [Suspect]
     Active Substance: CALCIUM CHLORIDE\DEXTROSE MONOHYDRATE\MAGNESIUM CHLORIDE\SODIUM CHLORIDE\SODIUM LACTATE
     Indication: CHRONIC KIDNEY DISEASE
     Route: 033
     Dates: start: 201307, end: 20150910
  10. BECLOMETHASONE [Concomitant]
     Active Substance: BECLOMETHASONE
  11. LIBERTY CYCLER [Concomitant]
     Active Substance: DEVICE
  12. PREDNISONE. [Concomitant]
     Active Substance: PREDNISONE
  13. LIBERTY CYCLER CASSETTE [Concomitant]
     Active Substance: DEVICE

REACTIONS (16)
  - Cardiac arrest [None]
  - Clostridium difficile infection [None]
  - Diarrhoea [None]
  - Dysarthria [None]
  - Interstitial lung disease [None]
  - Confusional state [None]
  - Hypophagia [None]
  - Discomfort [None]
  - Arterial insufficiency [None]
  - Peripheral ischaemia [None]
  - Deep vein thrombosis [None]
  - Pain [None]
  - Pneumonia [None]
  - Hip fracture [None]
  - Drug ineffective [None]
  - Disorientation [None]

NARRATIVE: CASE EVENT DATE: 20150911
